FAERS Safety Report 5297015-0 (Version None)
Quarter: 2007Q1

REPORT INFORMATION
  Report Type: 
  Country: None (occurrence: None)
  Receive Date: 20070201
  Receipt Date: 20061125
  Transmission Date: 20070707
  Serious: No
  Sender: FDA-Public Use
  Company Number: 2006PV024715

PATIENT
  Age: 58 Year
  Sex: Male
  Weight: 147.419 kg

DRUGS (4)
  1. BYETTA [Suspect]
     Indication: DIABETES MELLITUS NON-INSULIN-DEPENDENT
     Dosage: 5 MCG; BID; SC
     Route: 058
     Dates: start: 20061001
  2. GLUCOTROL [Concomitant]
  3. GLUCOPHAGE [Concomitant]
  4. LIPITOR [Concomitant]

REACTIONS (6)
  - BLOOD GLUCOSE FLUCTUATION [None]
  - ENERGY INCREASED [None]
  - ERUCTATION [None]
  - INFREQUENT BOWEL MOVEMENTS [None]
  - MEDICATION ERROR [None]
  - WEIGHT DECREASED [None]
